FAERS Safety Report 24346074 (Version 1)
Quarter: 2024Q3

REPORT INFORMATION
  Report Type: Spontaneous
  Country: US (occurrence: US)
  Receive Date: 20240921
  Receipt Date: 20240921
  Transmission Date: 20241016
  Serious: No
  Sender: AUROBINDO
  Company Number: US-AUROBINDO-AUR-APL-2024-039124

PATIENT
  Sex: Female

DRUGS (1)
  1. ALENDRONATE SODIUM [Suspect]
     Active Substance: ALENDRONATE SODIUM
     Indication: Osteoporosis
     Dosage: 1 DOSAGE FORM, EVERY WEEK
     Route: 048
     Dates: start: 202406

REACTIONS (2)
  - Toothache [Unknown]
  - Jaw disorder [Unknown]
